FAERS Safety Report 10195163 (Version 2)
Quarter: 2014Q2

REPORT INFORMATION
  Report Type: Spontaneous
  Country: US (occurrence: US)
  Receive Date: 20140526
  Receipt Date: 20140526
  Transmission Date: 20141212
  Serious: No
  Sender: FDA-Public Use
  Company Number: US-ASTRAZENECA-2009UW09906

PATIENT
  Age: 51 Year
  Sex: Female

DRUGS (9)
  1. SEROQUEL [Suspect]
     Indication: SLEEP DISORDER
     Route: 048
  2. SEROQUEL [Suspect]
     Indication: SCHIZOPHRENIA
     Route: 048
  3. SEROQUEL [Suspect]
     Indication: BIPOLAR DISORDER
     Route: 048
  4. SEROQUEL [Suspect]
     Indication: DEPRESSION
     Route: 048
  5. SEROQUEL [Suspect]
     Indication: SLEEP DISORDER
     Dosage: 100 MG TO 200 MG
     Route: 048
     Dates: start: 200109
  6. SEROQUEL [Suspect]
     Indication: SCHIZOPHRENIA
     Dosage: 100 MG TO 200 MG
     Route: 048
     Dates: start: 200109
  7. SEROQUEL [Suspect]
     Indication: BIPOLAR DISORDER
     Dosage: 100 MG TO 200 MG
     Route: 048
     Dates: start: 200109
  8. SEROQUEL [Suspect]
     Indication: DEPRESSION
     Dosage: 100 MG TO 200 MG
     Route: 048
     Dates: start: 200109
  9. ZYPREXA [Concomitant]
     Dates: start: 2001, end: 2001

REACTIONS (2)
  - Type 1 diabetes mellitus [Unknown]
  - Drug dose omission [Unknown]
